FAERS Safety Report 8619558 (Version 2)
Quarter: 2013Q1

REPORT INFORMATION
  Report Type: Report from Study
  Country: DE (occurrence: DE)
  Receive Date: 20120618
  Receipt Date: 20130128
  Transmission Date: 20140127
  Serious: Yes (Death, Hospitalization, Other)
  Sender: FDA-Public Use
  Company Number: PHHY2011DE46082

PATIENT
  Age: 60 Year
  Sex: Male
  Weight: 95 kg

DRUGS (6)
  1. AFINITOR [Suspect]
     Indication: RENAL CELL CARCINOMA
     Dosage: 10 MG, QD
     Route: 048
     Dates: start: 20110204, end: 20110922
  2. FUROSEMIDE [Concomitant]
  3. BETA BLOCKING AGENTS [Concomitant]
     Indication: HYPERTENSION
  4. ACE INHIBITOR NOS [Concomitant]
     Indication: HYPERTENSION
  5. CALCIUM CHANNEL BLOCKERS [Concomitant]
     Indication: HYPERTENSION
  6. LOPERAMIDE [Concomitant]

REACTIONS (7)
  - Neoplasm [Fatal]
  - Necrotising fasciitis [Recovered/Resolved]
  - Gout [Recovered/Resolved]
  - Pain in extremity [Recovered/Resolved]
  - Discomfort [Recovering/Resolving]
  - Hyperuricaemia [Recovering/Resolving]
  - Drug intolerance [Unknown]
